FAERS Safety Report 6912397-9 (Version None)
Quarter: 2010Q3

REPORT INFORMATION
  Report Type: 
  Country: None (occurrence: None)
  Receive Date: 20100806
  Receipt Date: 20080505
  Transmission Date: 20110219
  Serious: Yes (Life-Threatening, Other)
  Sender: FDA-Public Use
  Company Number: US-PFIZER INC-2008039110

PATIENT
  Sex: Female
  Weight: 40 kg

DRUGS (16)
  1. VFEND [Suspect]
     Indication: EYE INFECTION FUNGAL
     Route: 048
     Dates: start: 20070801
  2. MORPHINE [Concomitant]
  3. HEPARIN [Concomitant]
  4. CEFTAZIDIME [Concomitant]
  5. EPOETIN [Concomitant]
  6. OLANZAPINE [Concomitant]
  7. TACROLIMUS [Concomitant]
     Route: 061
  8. IBUPROFEN [Concomitant]
  9. ACETAMINOPHEN [Concomitant]
  10. LISINOPRIL [Concomitant]
  11. BENADRYL [Concomitant]
  12. ACYCLOVIR [Concomitant]
  13. LANSOPRAZOLE [Concomitant]
  14. MEGACE [Concomitant]
  15. CEFAZOLIN [Concomitant]
  16. SODIUM BICARBONATE [Concomitant]

REACTIONS (4)
  - ACTIVATED PARTIAL THROMBOPLASTIN TIME PROLONGED [None]
  - HEPATIC FAILURE [None]
  - PROTHROMBIN TIME PROLONGED [None]
  - RENAL FAILURE [None]
